FAERS Safety Report 6170957-X (Version None)
Quarter: 2009Q2

REPORT INFORMATION
  Report Type: 
  Country: None (occurrence: None)
  Receive Date: 20090427
  Receipt Date: 20090427
  Transmission Date: 20091009
  Serious: Yes (Hospitalization)
  Sender: FDA-Public Use
  Company Number: None

PATIENT
  Age: 30 Year
  Sex: Female

DRUGS (3)
  1. WARFARIN SODIUM [Suspect]
     Indication: ATRIAL FIBRILLATION
     Dosage: 10MG PO QD
     Route: 048
     Dates: start: 20081125, end: 20081213
  2. METHIMAZOLE [Concomitant]
  3. METOPROLOL [Concomitant]

REACTIONS (4)
  - ABDOMINAL PAIN [None]
  - HAEMORRHAGIC CYST [None]
  - INTERNATIONAL NORMALISED RATIO INCREASED [None]
  - VAGINAL HAEMORRHAGE [None]
